FAERS Safety Report 15319438 (Version 1)
Quarter: 2018Q3

REPORT INFORMATION
  Report Type: Spontaneous
  Country: GB (occurrence: GB)
  Receive Date: 20180827
  Receipt Date: 20180827
  Transmission Date: 20181010
  Serious: Yes (Other)
  Sender: FDA-Public Use
  Company Number: GB-TEVA-2018-GB-947209

PATIENT
  Age: 39 Year
  Sex: Female
  Weight: 85.27 kg

DRUGS (3)
  1. CELEBREX [Suspect]
     Active Substance: CELECOXIB
     Indication: THUNDERCLAP HEADACHE
     Dosage: 400 MILLIGRAM DAILY;
     Route: 048
     Dates: start: 20180723, end: 20180727
  2. VERAPAMIL HYDROCHLORIDE. [Suspect]
     Active Substance: VERAPAMIL HYDROCHLORIDE
     Indication: VASOSPASM
     Dosage: 120 MILLIGRAM DAILY;
     Route: 048
     Dates: start: 20180723, end: 20180727
  3. AMITRIPTYLINE HYDROCHLORIDE. [Suspect]
     Active Substance: AMITRIPTYLINE HYDROCHLORIDE
     Indication: THUNDERCLAP HEADACHE
     Route: 048
     Dates: start: 20180723, end: 20180727

REACTIONS (14)
  - Limb discomfort [Not Recovered/Not Resolved]
  - Migraine with aura [Not Recovered/Not Resolved]
  - Dyspepsia [Recovering/Resolving]
  - Palpitations [Recovering/Resolving]
  - Angina pectoris [Not Recovered/Not Resolved]
  - Abdominal pain upper [Recovering/Resolving]
  - Nightmare [Recovered/Resolved with Sequelae]
  - Cardiac flutter [Not Recovered/Not Resolved]
  - Depression suicidal [Recovering/Resolving]
  - Muscle fatigue [Not Recovered/Not Resolved]
  - Paraesthesia [Not Recovered/Not Resolved]
  - Haematochezia [Recovering/Resolving]
  - Swollen tongue [Recovered/Resolved]
  - Dissociation [Unknown]

NARRATIVE: CASE EVENT DATE: 20180723
